FAERS Safety Report 15391599 (Version 2)
Quarter: 2019Q2

REPORT INFORMATION
  Report Type: Spontaneous
  Country: US (occurrence: US)
  Receive Date: 20180917
  Receipt Date: 20190603
  Transmission Date: 20190711
  Serious: Yes (Death, Other)
  Sender: FDA-Public Use
  Company Number: US-SA-2018SA257256

PATIENT
  Age: 14 Year
  Sex: Female
  Weight: 40 kg

DRUGS (9)
  1. LISINOPRIL + HIDROCLOROTIAZIDA [Concomitant]
     Active Substance: HYDROCHLOROTHIAZIDE\LISINOPRIL
     Dosage: 10-12.5 MG, MOUTH DAILY
     Route: 048
     Dates: start: 20170301, end: 20190511
  2. HEPARIN [Concomitant]
     Active Substance: HEPARIN SODIUM
     Indication: FLUSHING
     Dosage: 100UN/ML AS DIRECTED
     Route: 042
     Dates: start: 20180602
  3. EPINEPHRINE. [Concomitant]
     Active Substance: EPINEPHRINE
     Indication: ANAPHYLACTIC REACTION
     Dosage: 0.3 MG, PRN
     Route: 030
     Dates: start: 20180602
  4. CARVEDILOL. [Concomitant]
     Active Substance: CARVEDILOL
     Dosage: 12.5 MG, QD
     Route: 048
     Dates: start: 20170301, end: 20190511
  5. NORMAL SALINE [Concomitant]
     Active Substance: SODIUM CHLORIDE
     Indication: FLUSHING
     Dosage: 0.9 % AS DIRECTED
     Route: 042
     Dates: start: 20180602
  6. SODIUM CHLORIDE. [Concomitant]
     Active Substance: SODIUM CHLORIDE
     Indication: FLUSHING
     Dosage: 0.9 %,AAS DIRECTED
     Route: 042
     Dates: start: 20180602
  7. STERILE WATER [Concomitant]
     Active Substance: WATER
     Dosage: I DOSE AS DIRECTED
     Route: 042
     Dates: start: 20180602
  8. LUMIZYME [Suspect]
     Active Substance: ALGLUCOSIDASE ALFA
     Indication: GLYCOGEN STORAGE DISORDER
  9. LUMIZYME [Suspect]
     Active Substance: ALGLUCOSIDASE ALFA
     Indication: GLYCOGEN STORAGE DISEASE TYPE II
     Dosage: 1500 MG, QOW
     Route: 041
     Dates: start: 20170301, end: 20190511

REACTIONS (5)
  - Death [Fatal]
  - Peripheral swelling [Unknown]
  - Central venous catheterisation [Unknown]
  - Breast swelling [Unknown]
  - Nasopharyngitis [Unknown]

NARRATIVE: CASE EVENT DATE: 20190511
